FAERS Safety Report 7459711-6 (Version None)
Quarter: 2011Q2

REPORT INFORMATION
  Report Type: 
  Country: None (occurrence: None)
  Receive Date: 20110505
  Receipt Date: 20100927
  Transmission Date: 20111010
  Serious: Yes (Hospitalization, Other)
  Sender: FDA-Public Use
  Company Number: US-BAYER-200937070NA

PATIENT
  Age: 27 Year
  Sex: Female
  Weight: 78.458 kg

DRUGS (11)
  1. YAZ [Suspect]
     Indication: ORAL CONTRACEPTION
  2. MOTRIN [Concomitant]
     Indication: HEADACHE
  3. DICLOFENAC [Concomitant]
  4. DIVALPROEX [Concomitant]
     Dosage: UNK
     Dates: start: 20100101
  5. YASMIN [Suspect]
     Indication: ACNE
  6. YASMIN [Suspect]
     Indication: PREMENSTRUAL SYNDROME
     Route: 048
     Dates: start: 20090601, end: 20090915
  7. CIPROFLOXACIN [Concomitant]
  8. YASMIN [Suspect]
     Indication: ORAL CONTRACEPTION
  9. YAZ [Suspect]
     Indication: PREMENSTRUAL SYNDROME
     Dosage: UNK
     Route: 048
     Dates: start: 20090601, end: 20090901
  10. YAZ [Suspect]
     Indication: ACNE
  11. HYDROCODONE BITARTRATE [Concomitant]

REACTIONS (2)
  - CHOLECYSTECTOMY [None]
  - CHOLECYSTITIS CHRONIC [None]
